FAERS Safety Report 7918830-8 (Version None)
Quarter: 2011Q4

REPORT INFORMATION
  Report Type: 
  Country: None (occurrence: None)
  Receive Date: 20111116
  Receipt Date: 20111104
  Transmission Date: 20120403
  Serious: Yes (Hospitalization, Other)
  Sender: FDA-Public Use
  Company Number: PHHY2011CN097938

PATIENT
  Age: 50 Year
  Sex: Female

DRUGS (2)
  1. MIRTAZAPINE [Suspect]
     Indication: DEPRESSION
     Dosage: 30 MG/DAY
  2. MIRTAZAPINE [Suspect]
     Dosage: 45 MG/DAY

REACTIONS (22)
  - DYSPNOEA [None]
  - SINUS TACHYCARDIA [None]
  - ATRIAL SEPTAL DEFECT [None]
  - PULMONARY EMBOLISM [None]
  - ANAEMIA [None]
  - TRICUSPID VALVE INCOMPETENCE [None]
  - PALPITATIONS [None]
  - ATELECTASIS [None]
  - RALES [None]
  - DILATATION VENTRICULAR [None]
  - OEDEMA PERIPHERAL [None]
  - LUNG INFECTION [None]
  - ELECTROCARDIOGRAM T WAVE ABNORMAL [None]
  - DYSPHORIA [None]
  - CHEST DISCOMFORT [None]
  - PULMONARY ARTERY THROMBOSIS [None]
  - SYNCOPE [None]
  - QRS AXIS ABNORMAL [None]
  - DEEP VEIN THROMBOSIS [None]
  - HYPOXIA [None]
  - PULMONARY HYPERTENSION [None]
  - PYREXIA [None]
